FAERS Safety Report 19046249 (Version 1)
Quarter: 2021Q1

REPORT INFORMATION
  Report Type: Spontaneous
  Country: US (occurrence: US)
  Receive Date: 20210322
  Receipt Date: 20210322
  Transmission Date: 20210420
  Serious: No
  Sender: FDA-Public Use
  Company Number: US-009507513-2103USA003858

PATIENT
  Sex: Female
  Weight: 63.5 kg

DRUGS (6)
  1. METFORMIN [Suspect]
     Active Substance: METFORMIN HYDROCHLORIDE
     Indication: DIABETES MELLITUS
  2. INSULIN [Concomitant]
     Active Substance: INSULIN NOS
  3. INVOKANA [Suspect]
     Active Substance: CANAGLIFLOZIN
     Indication: DIABETES MELLITUS
  4. JANUVIA [Suspect]
     Active Substance: SITAGLIPTIN PHOSPHATE
     Indication: DIABETES MELLITUS
  5. PRISTIQ EXTENDED?RELEASE [Concomitant]
     Active Substance: DESVENLAFAXINE SUCCINATE
     Indication: ANXIETY
     Dosage: 1 PILL IN THE MORNING (QAM); FORMULATION: PINK ODD SHAPPED PILL
     Route: 048
  6. LYRICA [Concomitant]
     Active Substance: PREGABALIN
     Indication: NEUROPATHY PERIPHERAL
     Dosage: 50 MILLIGRAM, BID
     Route: 048
     Dates: start: 202001

REACTIONS (2)
  - Vomiting [Unknown]
  - Gastric disorder [Unknown]
